FAERS Safety Report 8134528-8 (Version None)
Quarter: 2012Q1

REPORT INFORMATION
  Report Type: 
  Country: None (occurrence: None)
  Receive Date: 20120209
  Receipt Date: 20120120
  Transmission Date: 20120608
  Serious: Yes (Hospitalization, Other)
  Sender: FDA-Public Use
  Company Number: EU-2011-10203

PATIENT
  Age: 41 Year
  Sex: Female

DRUGS (3)
  1. SAMSCA [Suspect]
     Indication: HYPONATRAEMIA
     Dosage: 15 MG, QD, ORAL
     Route: 048
     Dates: start: 20111023, end: 20111023
  2. NASONEX [Concomitant]
  3. CERAZETTE (DESOGESTREL) [Concomitant]

REACTIONS (1)
  - RAPID CORRECTION OF HYPONATRAEMIA [None]
